FAERS Safety Report 6934599-8 (Version None)
Quarter: 2010Q3

REPORT INFORMATION
  Report Type: 
  Country: None (occurrence: None)
  Receive Date: 20100820
  Receipt Date: 20100809
  Transmission Date: 20110219
  Serious: Yes (Other)
  Sender: FDA-Public Use
  Company Number: FR-JNJFOC-20100803375

PATIENT
  Age: 53 Year
  Sex: Male

DRUGS (2)
  1. REMICADE [Suspect]
     Indication: PSORIASIS
     Route: 042
  2. REMICADE [Suspect]
     Dosage: 7TH INFUSION
     Route: 042

REACTIONS (4)
  - ERYTHEMA [None]
  - FEELING HOT [None]
  - INFUSION RELATED REACTION [None]
  - PARAESTHESIA [None]
